FAERS Safety Report 13358987 (Version 2)
Quarter: 2017Q1

REPORT INFORMATION
  Report Type: Spontaneous
  Country: IT (occurrence: IT)
  Receive Date: 20170322
  Receipt Date: 20170324
  Transmission Date: 20170429
  Serious: Yes (Hospitalization)
  Sender: FDA-Public Use
  Company Number: IT-SA-2017SA046848

PATIENT
  Age: 81 Year
  Sex: Female

DRUGS (5)
  1. LANSOPRAZOLE. [Concomitant]
     Active Substance: LANSOPRAZOLE
     Route: 065
  2. ZOLPIDEM [Suspect]
     Active Substance: ZOLPIDEM\ZOLPIDEM TARTRATE
     Route: 048
     Dates: start: 20161123, end: 20161123
  3. SOTALEX [Concomitant]
     Active Substance: SOTALOL
     Route: 065
  4. FOLINA [Concomitant]
     Active Substance: FOLIC ACID
     Route: 065
  5. SIMVASTATIN. [Concomitant]
     Active Substance: SIMVASTATIN
     Route: 065

REACTIONS (4)
  - Confusional state [Unknown]
  - Accidental exposure to product [Unknown]
  - Accidental overdose [Unknown]
  - Sopor [Unknown]

NARRATIVE: CASE EVENT DATE: 20161123
